FAERS Safety Report 9861157 (Version 1)
Quarter: 2014Q1

REPORT INFORMATION
  Report Type: Spontaneous
  Country: US (occurrence: US)
  Receive Date: 20140202
  Receipt Date: 20140202
  Transmission Date: 20141002
  Serious: No
  Sender: FDA-Public Use
  Company Number: US-ALLERGAN-1303930US

PATIENT
  Sex: Female

DRUGS (1)
  1. BOTOX [Suspect]
     Indication: HYPERHIDROSIS
     Dosage: UNK, SINGLE

REACTIONS (2)
  - Off label use [Unknown]
  - Alopecia [Unknown]
